FAERS Safety Report 4907532-8 (Version None)
Quarter: 2006Q1

REPORT INFORMATION
  Report Type: 
  Country: None (occurrence: None)
  Receive Date: 20060210
  Receipt Date: 20051206
  Transmission Date: 20060701
  Serious: Yes (Disabling)
  Sender: FDA-Public Use
  Company Number: US-MERCK-0512USA00775

PATIENT
  Age: 27 Year
  Sex: Female

DRUGS (5)
  1. ZETIA [Suspect]
     Indication: BLOOD CHOLESTEROL INCREASED
     Route: 048
     Dates: start: 20051021, end: 20051201
  2. ZETIA [Suspect]
     Route: 048
     Dates: end: 20050101
  3. DEPO-PROVERA [Concomitant]
     Route: 065
  4. DEPAKOTE [Concomitant]
     Route: 065
  5. LAMICTAL [Concomitant]
     Route: 065

REACTIONS (12)
  - CLUMSINESS [None]
  - CONFUSIONAL STATE [None]
  - CYST [None]
  - HYPERHIDROSIS [None]
  - HYPOAESTHESIA [None]
  - PAIN IN JAW [None]
  - PARAESTHESIA [None]
  - PRURITUS [None]
  - RHINORRHOEA [None]
  - TIC [None]
  - TOOTHACHE [None]
  - TREMOR [None]
